FAERS Safety Report 23456583 (Version 1)
Quarter: 2024Q1

REPORT INFORMATION
  Report Type: Spontaneous
  Country: CN (occurrence: CN)
  Receive Date: 20240130
  Receipt Date: 20240130
  Transmission Date: 20240409
  Serious: Yes (Other)
  Sender: FDA-Public Use
  Company Number: CN-NOVITIUMPHARMA-2024CNNVP00090

PATIENT
  Age: 65 Year
  Sex: Male

DRUGS (6)
  1. PYRAZINAMIDE [Suspect]
     Active Substance: PYRAZINAMIDE
     Indication: Tuberculosis
  2. ISONIAZID [Concomitant]
     Active Substance: ISONIAZID
     Indication: Tuberculosis
  3. RIFAPENTINE [Concomitant]
     Active Substance: RIFAPENTINE
     Indication: Tuberculosis
  4. RIFAMPIN [Concomitant]
     Active Substance: RIFAMPIN
     Indication: Tuberculosis
  5. ETHAMBUTOL [Concomitant]
     Active Substance: ETHAMBUTOL HYDROCHLORIDE
     Indication: Tuberculosis
  6. LINEZOLID [Concomitant]
     Active Substance: LINEZOLID
     Indication: Tuberculosis

REACTIONS (4)
  - Pancytopenia [Unknown]
  - Hypoaesthesia [Unknown]
  - Rash [Unknown]
  - Anaemia [Unknown]
